FAERS Safety Report 25279721 (Version 1)
Quarter: 2025Q2

REPORT INFORMATION
  Report Type: Report from Study
  Country: US (occurrence: US)
  Receive Date: 20250507
  Receipt Date: 20250507
  Transmission Date: 20250717
  Serious: Yes (Death)
  Sender: BAYER HEALTHCARE PHARMACEUTICALS INC.
  Company Number: US-BAYER-2025A061505

PATIENT
  Age: 79 Year
  Sex: Male

DRUGS (19)
  1. ADEMPAS [Suspect]
     Active Substance: RIOCIGUAT
     Indication: Pulmonary arterial hypertension
     Dates: start: 20221014
  2. ADEMPAS [Suspect]
     Active Substance: RIOCIGUAT
     Indication: Pulmonary arterial hypertension
     Dosage: 2.5 MG, TID
     Route: 048
  3. ATORVASTATIN CALCIUM [Concomitant]
     Active Substance: ATORVASTATIN CALCIUM
  4. TAMSULOSIN HYDROCHLORIDE [Concomitant]
     Active Substance: TAMSULOSIN HYDROCHLORIDE
  5. METFORMIN HYDROCHLORIDE [Concomitant]
     Active Substance: METFORMIN HYDROCHLORIDE
  6. BISOPROLOL FUMARATE [Concomitant]
     Active Substance: BISOPROLOL FUMARATE
  7. BREO ELLIPTA [Concomitant]
     Active Substance: FLUTICASONE FUROATE\VILANTEROL TRIFENATATE
  8. ASPIRIN [Concomitant]
     Active Substance: ASPIRIN
  9. FINASTERIDE [Concomitant]
     Active Substance: FINASTERIDE
  10. MINERALS\VITAMINS [Concomitant]
     Active Substance: MINERALS\VITAMINS
  11. OPSUMIT [Concomitant]
     Active Substance: MACITENTAN
  12. LACTOBACILLUS ACIDOPHILUS [Concomitant]
     Active Substance: LACTOBACILLUS ACIDOPHILUS
  13. LANTUS [Concomitant]
     Active Substance: INSULIN GLARGINE
  14. ORENITRAM [Concomitant]
     Active Substance: TREPROSTINIL
  15. OXYGEN [Concomitant]
     Active Substance: OXYGEN
  16. SIMPONI ARIA [Concomitant]
     Active Substance: GOLIMUMAB
  17. FUROSEMIDE [Concomitant]
     Active Substance: FUROSEMIDE
  18. LISINOPRIL [Concomitant]
     Active Substance: LISINOPRIL
  19. FERROUS SULFATE [Concomitant]
     Active Substance: FERROUS SULFATE

REACTIONS (1)
  - Death [Fatal]

NARRATIVE: CASE EVENT DATE: 20250424
